FAERS Safety Report 11952303 (Version 2)
Quarter: 2016Q2

REPORT INFORMATION
  Report Type: Spontaneous
  Country: US (occurrence: US)
  Receive Date: 20160125
  Receipt Date: 20160524
  Transmission Date: 20160815
  Serious: Yes (Hospitalization)
  Sender: FDA-Public Use
  Company Number: US-ALLERGAN-1601617US

PATIENT
  Sex: Male

DRUGS (2)
  1. KYBELLA [Suspect]
     Active Substance: DEOXYCHOLIC ACID
     Dosage: UNK, SINGLE
     Route: 058
  2. KYBELLA [Suspect]
     Active Substance: DEOXYCHOLIC ACID
     Indication: PRODUCT USED FOR UNKNOWN INDICATION
     Dosage: UNK, SINGLE
     Route: 058

REACTIONS (3)
  - Sensory loss [Recovering/Resolving]
  - Facial paralysis [Recovering/Resolving]
  - Guillain-Barre syndrome [Recovering/Resolving]
